FAERS Safety Report 12866098 (Version 1)
Quarter: 2016Q4

REPORT INFORMATION
  Report Type: Spontaneous
  Country: US (occurrence: US)
  Receive Date: 20161020
  Receipt Date: 20161020
  Transmission Date: 20170207
  Serious: No
  Sender: FDA-Public Use
  Company Number: US-MYLANLABS-2016M1006178

PATIENT
  Sex: Female
  Weight: 63.49 kg

DRUGS (2)
  1. PINDOLOL TABLETS, USP [Suspect]
     Active Substance: PINDOLOL
     Indication: BLOOD PRESSURE MANAGEMENT
     Dosage: 10 MG, BID
     Route: 048
  2. CLONIDINE. [Concomitant]
     Active Substance: CLONIDINE
     Indication: BLOOD PRESSURE MANAGEMENT
     Dosage: UNK

REACTIONS (1)
  - Blood pressure increased [Not Recovered/Not Resolved]

NARRATIVE: CASE EVENT DATE: 2016
